FAERS Safety Report 6678767-1 (Version None)
Quarter: 2010Q2

REPORT INFORMATION
  Report Type: 
  Country: None (occurrence: None)
  Receive Date: 20100408
  Receipt Date: 20100324
  Transmission Date: 20101027
  Serious: Yes (Death, Hospitalization)
  Sender: FDA-Public Use
  Company Number: 2008001418

PATIENT
  Age: 77 Year
  Sex: Male

DRUGS (15)
  1. ERLOTINIB (ERLOTINIB) (TABLET) (ERLOTINIB) [Suspect]
     Indication: NON-SMALL CELL LUNG CANCER
     Dosage: (150 MG), ORAL; (150 MG, QD), ORAL
     Route: 048
     Dates: start: 20080205, end: 20080430
  2. ERLOTINIB (ERLOTINIB) (TABLET) (ERLOTINIB) [Suspect]
     Indication: NON-SMALL CELL LUNG CANCER
     Dosage: (150 MG), ORAL; (150 MG, QD), ORAL
     Route: 048
     Dates: start: 20080301, end: 20080430
  3. TOLEXINE (DOXYCYCLINE) [Concomitant]
     Indication: NON-SMALL CELL LUNG CANCER
     Dosage: (100 MG), ORAL
     Route: 048
     Dates: start: 20080204, end: 20080430
  4. HYPERIUM (RILMENIDINE) [Concomitant]
  5. NICARDIPINE HCL [Concomitant]
  6. FERO-GRAD (FERROUS SULFATE) [Concomitant]
  7. ESOMEPRAZOLE MAGNESIUM [Concomitant]
  8. SOLUPRED (PREDNISOLONE SODIUM SULFOBENZOATE) [Concomitant]
  9. LASIX [Concomitant]
  10. CRESTOR [Concomitant]
  11. CLAFORAN [Concomitant]
  12. AMOXICILLIN [Concomitant]
  13. DURAGESIC-100 [Concomitant]
  14. URBANYL (CLOBAZAM) [Concomitant]
  15. HAVLANE (LOPRAZOLAM MESILATE) [Concomitant]

REACTIONS (5)
  - BACK PAIN [None]
  - DYSURIA [None]
  - GENERAL PHYSICAL HEALTH DETERIORATION [None]
  - PYREXIA [None]
  - URINARY RETENTION [None]
